FAERS Safety Report 8536638 (Version 2)
Quarter: 2012Q4

REPORT INFORMATION
  Report Type: 
  Country: JP (occurrence: JP)
  Receive Date: 20120430
  Receipt Date: 20120907
  Transmission Date: 20130627
  Serious: Yes (Other)
  Sender: FDA-Public Use
  Company Number: JP-ROCHE-1061493

PATIENT
  Age: 69 Year
  Sex: Male

DRUGS (4)
  1. AVASTIN [Suspect]
     Indication: LUNG ADENOCARCINOMA RECURRENT
     Dosage: Dosage is uncertain.
     Route: 041
  2. CISPLATIN [Suspect]
     Indication: LUNG ADENOCARCINOMA RECURRENT
     Dosage: Dosage is uncertain.
     Route: 041
  3. VINORELBINE [Suspect]
     Indication: LUNG ADENOCARCINOMA RECURRENT
     Dosage: Dosage is uncertain.
     Route: 041
  4. ALIMTA [Concomitant]
     Indication: LUNG ADENOCARCINOMA RECURRENT
     Dosage: Dosage is uncertain.
     Route: 041

REACTIONS (1)
  - Myeloid leukaemia [Unknown]
